FAERS Safety Report 6529218-9 (Version None)
Quarter: 2010Q1

REPORT INFORMATION
  Report Type: 
  Country: None (occurrence: None)
  Receive Date: 20100107
  Receipt Date: 20091228
  Transmission Date: 20100710
  Serious: Yes (Death, Hospitalization, Disabling)
  Sender: FDA-Public Use
  Company Number: US-ROCHE-657104

PATIENT
  Age: 65 Year
  Sex: Female
  Weight: 64.9 kg

DRUGS (5)
  1. XELODA [Suspect]
     Indication: GASTRIC CANCER
     Dosage: DOSE FOR 14 DAYS; FREQUENCY: EVERY 03 WEEKS
     Route: 048
     Dates: start: 20090619, end: 20090723
  2. CARBOPLATIN [Suspect]
     Indication: GASTRIC CANCER
     Dosage: DOSE: 06 AUC
     Route: 042
     Dates: start: 20090619, end: 20090723
  3. HYDROCHLOROTHIAZIDE [Concomitant]
     Indication: HYPERTENSION
     Route: 048
  4. LEVOTHYROXINE SODIUM [Concomitant]
     Indication: HYPOTHYROIDISM
     Route: 048
  5. ESOMEPRAZOLE SODIUM (NEXIUM) [Concomitant]
     Route: 048

REACTIONS (7)
  - ABDOMINAL PAIN [None]
  - CARDIO-RESPIRATORY ARREST [None]
  - DIARRHOEA [None]
  - ELECTROLYTE IMBALANCE [None]
  - FATIGUE [None]
  - NAUSEA [None]
  - PLATELET COUNT DECREASED [None]
